FAERS Safety Report 9861946 (Version 1)
Quarter: 2014Q1

REPORT INFORMATION
  Report Type: Spontaneous
  Country: US (occurrence: US)
  Receive Date: 20140203
  Receipt Date: 20140203
  Transmission Date: 20141002
  Serious: Yes (Other)
  Sender: FDA-Public Use
  Company Number: US-DRREDDYS-USA/USA/14/0037356

PATIENT
  Age: 83 Year
  Sex: Male
  Weight: 65.83 kg

DRUGS (3)
  1. RANITIDINE TABLETS 150 MG OTC [Suspect]
     Indication: GASTROOESOPHAGEAL REFLUX DISEASE
     Route: 048
     Dates: start: 201301, end: 201401
  2. RANITIDINE TABLETS 150 MG OTC [Suspect]
     Route: 048
     Dates: start: 20140120
  3. PANTOPRAZOLE SODIUM DR TABLETS 20MG + 40MG [Concomitant]
     Indication: GASTROOESOPHAGEAL REFLUX DISEASE
     Route: 048
     Dates: start: 201401, end: 20140120

REACTIONS (2)
  - Rectal haemorrhage [Unknown]
  - Diarrhoea [Not Recovered/Not Resolved]
